FAERS Safety Report 18071198 (Version 3)
Quarter: 2021Q1

REPORT INFORMATION
  Report Type: Report from Study
  Country: US (occurrence: US)
  Receive Date: 20200727
  Receipt Date: 20210131
  Transmission Date: 20210419
  Serious: Yes (Hospitalization)
  Sender: FDA-Public Use
  Company Number: US-BIOGEN-2020BI00901342

PATIENT
  Sex: Female

DRUGS (13)
  1. NEURONTIN [Concomitant]
     Active Substance: GABAPENTIN
     Indication: PRODUCT USED FOR UNKNOWN INDICATION
     Dosage: ONE CAPSULE BY MOUTH THREE TIMES DAILY
     Route: 048
  2. CELEXA [Concomitant]
     Active Substance: CITALOPRAM HYDROBROMIDE
     Indication: DEPRESSION
     Route: 048
  3. TECFIDERA [Suspect]
     Active Substance: DIMETHYL FUMARATE
     Route: 048
     Dates: start: 2015
  4. XARELTO [Concomitant]
     Active Substance: RIVAROXABAN
     Indication: PRODUCT USED FOR UNKNOWN INDICATION
     Dosage: 1 TABLET PO BID WC FOR 21 DAYS
     Route: 048
  5. BUSIPIRONE (BUSPAR) [Concomitant]
     Indication: ANXIETY DISORDER
     Dosage: 1 TABLET (15 MG) BY MOUTH DAILY
     Route: 048
  6. TECFIDERA [Suspect]
     Active Substance: DIMETHYL FUMARATE
     Indication: MULTIPLE SCLEROSIS
     Dosage: MAINTENANCE DOSE
     Route: 048
     Dates: start: 20150721
  7. FOSAMAX [Concomitant]
     Active Substance: ALENDRONATE SODIUM
     Indication: PRODUCT USED FOR UNKNOWN INDICATION
     Dosage: TAKE ONE TABLET BY MOUTH EVERY 7 DAYS
     Route: 048
  8. CYANOCOBALAMIN. [Concomitant]
     Active Substance: CYANOCOBALAMIN
     Indication: PRODUCT USED FOR UNKNOWN INDICATION
     Dosage: 1000 UNITS SQ WEEKLY X 4 WEEKS THAN MONTHLY
     Route: 065
  9. ACETAMINOPHEIN (TYLENOL) [Concomitant]
     Indication: PRODUCT USED FOR UNKNOWN INDICATION
     Dosage: TAKE 2 TABLETS (1000 MG) BY MOUTH 3 TIMES DAILY
     Route: 048
  10. LIORESAL [Concomitant]
     Active Substance: BACLOFEN
     Indication: PRODUCT USED FOR UNKNOWN INDICATION
     Dosage: 0.5 TABLETS (5 MG) BY MOUTH 2 TIMES DAILY AS NEEDED.
     Route: 048
  11. HYDROXYUREA. [Concomitant]
     Active Substance: HYDROXYUREA
     Indication: PRODUCT USED FOR UNKNOWN INDICATION
     Route: 065
  12. TRAZODONE (DESYREL) [Concomitant]
     Indication: PRODUCT USED FOR UNKNOWN INDICATION
     Dosage: 1.5 TABLETS BY MOUTH AT BEDTIME
     Route: 048
  13. TRAMADOL (ULTRAM) [Concomitant]
     Indication: PAIN
     Dosage: 1 TABLET BY MOUTH EVERY 8 HOURS AS NEEDED
     Route: 048

REACTIONS (1)
  - Pulmonary embolism [Unknown]
